FAERS Safety Report 7786750-8 (Version None)
Quarter: 2011Q3

REPORT INFORMATION
  Report Type: 
  Country: None (occurrence: None)
  Receive Date: 20110929
  Receipt Date: 20110923
  Transmission Date: 20111222
  Serious: Yes (Other)
  Sender: FDA-Public Use
  Company Number: GB-TEVA-302075ISR

PATIENT
  Age: 44 Year
  Sex: Female
  Weight: 70 kg

DRUGS (4)
  1. FLUCONAZOLE [Suspect]
     Dates: start: 20110913
  2. PREDNISOLONE [Concomitant]
     Dates: start: 20110912, end: 20110913
  3. CLOTRIMAZOLE [Concomitant]
     Dates: start: 20110912
  4. NYSTATIN [Concomitant]
     Dates: start: 20110912

REACTIONS (2)
  - MOUTH ULCERATION [None]
  - OEDEMA MOUTH [None]
